FAERS Safety Report 8032485-6 (Version None)
Quarter: 2011Q4

REPORT INFORMATION
  Report Type: 
  Country: None (occurrence: None)
  Receive Date: 20111222
  Receipt Date: 20111213
  Transmission Date: 20120403
  Serious: Yes (Hospitalization, Congenital Anomaly)
  Sender: FDA-Public Use
  Company Number: DSA_47439_2011

PATIENT
  Sex: Male

DRUGS (16)
  1. MIGRAZONE [Concomitant]
  2. ZELNORM [Concomitant]
  3. REGLAN [Concomitant]
  4. ICAR-C [Concomitant]
  5. ZITHROMAX [Concomitant]
  6. COLACE [Concomitant]
  7. WELLBUTRIN [Suspect]
     Indication: PRODUCT USED FOR UNKNOWN INDICATION
     Dosage: (DF TRANSPLACENTAL)
     Route: 064
  8. APAP W/ CODEINE [Concomitant]
  9. EPIDRIN [Concomitant]
  10. AMBIEN [Concomitant]
  11. XANAX [Concomitant]
  12. PHENERGAN [Concomitant]
  13. LACTULOSE [Concomitant]
  14. MAXZIDE [Concomitant]
  15. KETEK [Concomitant]
  16. ZYRTEC [Concomitant]

REACTIONS (54)
  - DEVELOPMENTAL DELAY [None]
  - UNEVALUABLE EVENT [None]
  - CARDIAC FAILURE CONGESTIVE [None]
  - AUTISM [None]
  - DYSPHAGIA [None]
  - OTITIS MEDIA [None]
  - SLEEP APNOEA SYNDROME [None]
  - MENTAL RETARDATION [None]
  - EMOTIONAL DISORDER [None]
  - FAILURE TO THRIVE [None]
  - NASAL SEPTUM DISORDER [None]
  - GASTROOESOPHAGEAL REFLUX DISEASE [None]
  - CONSTIPATION [None]
  - DILATATION VENTRICULAR [None]
  - PETIT MAL EPILEPSY [None]
  - STARING [None]
  - DEHYDRATION [None]
  - COGNITIVE DISORDER [None]
  - DEFORMITY [None]
  - HYPOTONIA [None]
  - CRYPTORCHISM [None]
  - CONGENITAL ANOMALY [None]
  - DEAFNESS [None]
  - DILATATION ATRIAL [None]
  - RESPIRATORY FAILURE [None]
  - COLITIS [None]
  - MOTOR DEVELOPMENTAL DELAY [None]
  - SCAR [None]
  - PREMATURE BABY [None]
  - PATENT DUCTUS ARTERIOSUS [None]
  - DELAYED FONTANELLE CLOSURE [None]
  - ATRIAL SEPTAL DEFECT [None]
  - MICROPENIS [None]
  - COUGH [None]
  - PNEUMONIA [None]
  - SENSORY INTEGRATIVE DYSFUNCTION [None]
  - PAIN [None]
  - HYPERTELORISM OF ORBIT [None]
  - FALLOT'S TETRALOGY [None]
  - GASTRIC VOLVULUS [None]
  - BODY DYSMORPHIC DISORDER [None]
  - ANISOMETROPIA [None]
  - ASPIRATION [None]
  - ECTOPIC KIDNEY [None]
  - HEART DISEASE CONGENITAL [None]
  - APGAR SCORE LOW [None]
  - MIDDLE EAR DISORDER [None]
  - GASTROINTESTINAL HAEMORRHAGE [None]
  - CEREBRAL CYST [None]
  - FOETAL EXPOSURE DURING PREGNANCY [None]
  - ANXIETY [None]
  - SPEECH DISORDER DEVELOPMENTAL [None]
  - ANAEMIA [None]
  - IMPAIRED GASTRIC EMPTYING [None]
